FAERS Safety Report 6573143-4 (Version None)
Quarter: 2010Q1

REPORT INFORMATION
  Report Type: 
  Country: None (occurrence: None)
  Receive Date: 20100208
  Receipt Date: 20090803
  Transmission Date: 20100710
  Serious: Yes (Hospitalization)
  Sender: FDA-Public Use
  Company Number: DE-ELI_LILLY_AND_COMPANY-DE200908000799

PATIENT
  Sex: Male

DRUGS (5)
  1. BYETTA [Suspect]
     Indication: TYPE 2 DIABETES MELLITUS
     Dosage: 10 UG, UNKNOWN
     Route: 058
     Dates: start: 20090301
  2. DIURETICS [Concomitant]
  3. ANTIHYPERTENSIVES [Concomitant]
  4. HUMALOG [Concomitant]
     Dates: start: 20040101
  5. LANTUS [Concomitant]

REACTIONS (5)
  - AUTOIMMUNE THYROIDITIS [None]
  - FATIGUE [None]
  - GLYCOSYLATED HAEMOGLOBIN INCREASED [None]
  - HYPOTHYROIDISM [None]
  - WEIGHT INCREASED [None]
